FAERS Safety Report 7913924-5 (Version None)
Quarter: 2011Q4

REPORT INFORMATION
  Report Type: 
  Country: None (occurrence: None)
  Receive Date: 20111115
  Receipt Date: 20111102
  Transmission Date: 20120403
  Serious: Yes (Hospitalization, Other)
  Sender: FDA-Public Use
  Company Number: FR-PFIZER INC-2011267867

PATIENT
  Age: 82 Year
  Sex: Male

DRUGS (5)
  1. AUGMENTIN [Suspect]
     Dosage: 1 DF, 3X/DAY
     Route: 048
     Dates: start: 20110910, end: 20110915
  2. ATORVASTATIN CALCIUM [Suspect]
     Dosage: 1 DF, 1X/DAY
     Route: 048
     Dates: start: 20080101, end: 20110920
  3. CORDARONE [Suspect]
     Indication: ATRIAL FIBRILLATION
     Dosage: 200 MG, 3X/DAY
     Route: 048
     Dates: start: 20110914, end: 20110920
  4. CORDARONE [Suspect]
     Indication: LEFT VENTRICULAR FAILURE
  5. DIGOXIN [Suspect]
     Dosage: 1 DF, 1X/DAY
     Route: 048
     Dates: start: 20110914, end: 20110916

REACTIONS (10)
  - CHOLECYSTITIS ACUTE [None]
  - HEPATITIS [None]
  - RETROPERITONEAL HAEMATOMA [None]
  - HAEMOPHILUS INFECTION [None]
  - ATRIAL FIBRILLATION [None]
  - ARTERIAL INJURY [None]
  - TRACHEOSTOMY [None]
  - AORTIC VALVE REPLACEMENT [None]
  - HAEMATOMA [None]
  - LEFT VENTRICULAR FAILURE [None]
